FAERS Safety Report 7387224-9 (Version None)
Quarter: 2011Q1

REPORT INFORMATION
  Report Type: 
  Country: None (occurrence: None)
  Receive Date: 20110331
  Receipt Date: 20110322
  Transmission Date: 20110831
  Serious: Yes (Other)
  Sender: FDA-Public Use
  Company Number: AU-ASTRAZENECA-2011SE17276

PATIENT
  Age: 57 Year
  Sex: Female

DRUGS (7)
  1. NITRAZEPAM [Suspect]
     Route: 065
  2. CHAMPIX [Suspect]
     Route: 065
  3. PREMARIN [Suspect]
     Route: 065
  4. NEXIUM [Suspect]
     Route: 048
  5. DIAZEPAM [Suspect]
     Route: 065
  6. MERSYNDOL FORTE [Suspect]
     Indication: PAIN
     Route: 065
  7. OXYCONTIN [Suspect]
     Route: 065

REACTIONS (2)
  - SUICIDE ATTEMPT [None]
  - MULTIPLE DRUG OVERDOSE [None]
